FAERS Safety Report 10985349 (Version 1)
Quarter: 2015Q2

REPORT INFORMATION
  Report Type: Spontaneous
  Country: US (occurrence: US)
  Receive Date: 20150404
  Receipt Date: 20150404
  Transmission Date: 20150821
  Serious: No
  Sender: FDA-Public Use
  Company Number: US-SA-2014SA045824

PATIENT
  Age: 75 Year
  Sex: Male

DRUGS (1)
  1. ALLEGRA-D [Suspect]
     Active Substance: FEXOFENADINE\PSEUDOEPHEDRINE
     Indication: HYPERSENSITIVITY
     Dosage: DOSE - 60 / 120 MG ?FREQUENCY - ONCE OR TWICE A DAY?START DATE - 35 YEARS AGO
     Route: 048

REACTIONS (3)
  - Therapeutic reaction time decreased [Unknown]
  - Dyspnoea [Unknown]
  - Feeling abnormal [Unknown]
